FAERS Safety Report 8463371-5 (Version None)
Quarter: 2012Q2

REPORT INFORMATION
  Report Type: 
  Country: None (occurrence: None)
  Receive Date: 20120625
  Receipt Date: 20120618
  Transmission Date: 20120825
  Serious: Yes (Hospitalization)
  Sender: FDA-Public Use
  Company Number: US-MERCK-1204USA01368

PATIENT
  Age: 54 Year
  Sex: Female

DRUGS (4)
  1. FOSAMAX [Suspect]
     Indication: OSTEOPOROSIS
     Route: 048
     Dates: start: 19960301, end: 20080301
  2. FOSAMAX [Suspect]
     Route: 048
     Dates: start: 19970901
  3. ALENDRONATE SODIUM [Suspect]
     Indication: OSTEOPOROSIS
     Route: 065
     Dates: start: 20110728
  4. FOSAMAX [Suspect]
     Route: 048
     Dates: start: 20080303, end: 20120401

REACTIONS (17)
  - CALCIUM DEFICIENCY [None]
  - ADVERSE EVENT [None]
  - DIABETES MELLITUS [None]
  - BLOOD CHOLESTEROL INCREASED [None]
  - FEMUR FRACTURE [None]
  - FALL [None]
  - ARTHRITIS [None]
  - ASTHMA [None]
  - BLOOD CALCIUM DECREASED [None]
  - WOUND INFECTION [None]
  - LIMB INJURY [None]
  - GASTROOESOPHAGEAL REFLUX DISEASE [None]
  - HYPERTENSION [None]
  - VITAMIN D DEFICIENCY [None]
  - GAIT DISTURBANCE [None]
  - ARTHRALGIA [None]
  - BACK PAIN [None]
